FAERS Safety Report 17246837 (Version 13)
Quarter: 2023Q4

REPORT INFORMATION
  Report Type: Spontaneous
  Country: US (occurrence: US)
  Receive Date: 20200108
  Receipt Date: 20231211
  Transmission Date: 20240110
  Serious: No
  Sender: FDA-Public Use
  Company Number: US-PFIZER INC-2019514077

PATIENT
  Age: 43 Year
  Sex: Female
  Weight: 70.5 kg

DRUGS (5)
  1. PREMARIN [Suspect]
     Active Substance: ESTROGENS, CONJUGATED
     Indication: Hormone replacement therapy
     Dosage: UNK, (145 UNIT NOT PROVIDED)1X/DAY
     Dates: start: 199404
  2. PREMARIN [Suspect]
     Active Substance: ESTROGENS, CONJUGATED
     Indication: Hot flush
     Dosage: 1 DF, 1X/DAY
     Route: 048
  3. PREMARIN [Suspect]
     Active Substance: ESTROGENS, CONJUGATED
     Dosage: 0.45 MG, 1X/DAY
  4. PROVERA [Concomitant]
     Active Substance: MEDROXYPROGESTERONE ACETATE
     Dosage: UNK, DAILY
     Dates: start: 199404
  5. VALIUM [Concomitant]
     Active Substance: DIAZEPAM
     Dosage: 1 MG, UNK
     Dates: start: 1980

REACTIONS (7)
  - Essential tremor [Not Recovered/Not Resolved]
  - Malaise [Unknown]
  - Dysgraphia [Unknown]
  - Anger [Unknown]
  - Emotional disorder [Unknown]
  - Stress [Unknown]
  - Memory impairment [Unknown]

NARRATIVE: CASE EVENT DATE: 19940801
